FAERS Safety Report 11640755 (Version 1)
Quarter: 2015Q4

REPORT INFORMATION
  Report Type: Spontaneous
  Country: CA (occurrence: CA)
  Receive Date: 20151019
  Receipt Date: 20151019
  Transmission Date: 20160304
  Serious: Yes (Other)
  Sender: FDA-Public Use
  Company Number: CA-MYLANLABS-2015M1034962

PATIENT

DRUGS (2)
  1. PAROXETINE [Suspect]
     Active Substance: PAROXETINE\PAROXETINE HYDROCHLORIDE
     Indication: PANIC DISORDER WITH AGORAPHOBIA
     Dosage: 20 MG/DAY TAPERED DOWN TO 10 MG NIGHTLY
     Route: 065
  2. PAROXETINE [Suspect]
     Active Substance: PAROXETINE\PAROXETINE HYDROCHLORIDE
     Dosage: 10 MG NIGHTLY, DISCONTINUED SUBSEQUENTLY
     Route: 065

REACTIONS (6)
  - Cyclothymic disorder [Recovering/Resolving]
  - Tension [Recovering/Resolving]
  - Nervousness [Recovering/Resolving]
  - Diarrhoea [Recovering/Resolving]
  - Drug withdrawal syndrome [Recovering/Resolving]
  - Headache [Recovering/Resolving]
